FAERS Safety Report 11418569 (Version 1)
Quarter: 2015Q3

REPORT INFORMATION
  Report Type: Spontaneous
  Country: GB (occurrence: GB)
  Receive Date: 20150826
  Receipt Date: 20150826
  Transmission Date: 20151125
  Serious: Yes (Other)
  Sender: FDA-Public Use
  Company Number: GB-AUROBINDO-AUR-APL-2015-07370

PATIENT
  Age: 23 Year
  Sex: Female
  Weight: 78.1 kg

DRUGS (1)
  1. NAPROXEN TABLET [Suspect]
     Active Substance: NAPROXEN
     Indication: ACUTE SINUSITIS
     Dosage: 1 DF, TWO TIMES A DAY
     Route: 048

REACTIONS (2)
  - Synovial cyst [Not Recovered/Not Resolved]
  - Peripheral swelling [Not Recovered/Not Resolved]
